FAERS Safety Report 4762651-4 (Version None)
Quarter: 2005Q3

REPORT INFORMATION
  Report Type: 
  Country: None (occurrence: None)
  Receive Date: 20050907
  Receipt Date: 20050830
  Transmission Date: 20060218
  Serious: Yes (Hospitalization, Other)
  Sender: FDA-Public Use
  Company Number: 2005AP04686

PATIENT
  Age: 39 Year
  Sex: Female

DRUGS (1)
  1. ANAPEINE [Suspect]
     Indication: EPIDURAL ANAESTHESIA
     Dosage: 4 ML/H X 25 HOURS
     Route: 008
     Dates: start: 20050401, end: 20050402

REACTIONS (2)
  - BLISTER [None]
  - DECUBITUS ULCER [None]
